FAERS Safety Report 15465039 (Version 5)
Quarter: 2019Q2

REPORT INFORMATION
  Report Type: Report from Study
  Country: US (occurrence: US)
  Receive Date: 20181004
  Receipt Date: 20190415
  Transmission Date: 20190711
  Serious: Yes (Hospitalization, Other)
  Sender: FDA-Public Use
  Company Number: US-ARIAD PHARMACEUTICALS, INC-2017US008820

PATIENT
  Age: 78 Year
  Sex: Female

DRUGS (3)
  1. PONATINIB [Suspect]
     Active Substance: PONATINIB
     Dosage: 15 MILLIGRAM, QOD
     Route: 048
     Dates: start: 201612
  2. PONATINIB [Suspect]
     Active Substance: PONATINIB
     Indication: CHRONIC MYELOID LEUKAEMIA
     Dosage: 15 MILLIGRAM, QD
     Route: 048
     Dates: start: 20161228
  3. PONATINIB [Suspect]
     Active Substance: PONATINIB
     Dosage: 15 MILLIGRAM, QD
     Route: 048

REACTIONS (16)
  - Ankle fracture [Unknown]
  - Blood iron decreased [Unknown]
  - Thyroid mass [Unknown]
  - Confusional state [Unknown]
  - Muscular weakness [Unknown]
  - Fall [Unknown]
  - Cholelithiasis [Unknown]
  - Nausea [Unknown]
  - Off label use [Unknown]
  - Urinary tract infection [Unknown]
  - Nephrogenic anaemia [Unknown]
  - Chronic kidney disease [Unknown]
  - Coronary artery disease [Unknown]
  - Dyspnoea [Unknown]
  - Infection [Unknown]
  - Peripheral sensory neuropathy [Unknown]

NARRATIVE: CASE EVENT DATE: 201612
